FAERS Safety Report 11581530 (Version 1)
Quarter: 2015Q4

REPORT INFORMATION
  Report Type: Spontaneous
  Country: US (occurrence: US)
  Receive Date: 20151001
  Receipt Date: 20151001
  Transmission Date: 20160304
  Serious: No
  Sender: FDA-Public Use
  Company Number: US-ROCHE-684909

PATIENT
  Age: 59 Year
  Sex: Female
  Weight: 75 kg

DRUGS (9)
  1. CYMBALTA [Concomitant]
     Active Substance: DULOXETINE HYDROCHLORIDE
     Route: 065
  2. GABAPENTIN. [Concomitant]
     Active Substance: GABAPENTIN
     Route: 065
  3. BENICAR [Concomitant]
     Active Substance: OLMESARTAN MEDOXOMIL
     Route: 065
  4. COMBIVENT [Concomitant]
     Active Substance: ALBUTEROL SULFATE\IPRATROPIUM BROMIDE
     Route: 065
  5. RIBAVIRIN. [Concomitant]
     Active Substance: RIBAVIRIN
     Indication: HEPATITIS C
     Route: 065
  6. PEGASYS [Suspect]
     Active Substance: PEGINTERFERON ALFA-2A
     Indication: HEPATITIS C
     Dosage: FORM: PREFILLED SYRINGE
     Route: 065
  7. ABILIFY [Concomitant]
     Active Substance: ARIPIPRAZOLE
     Route: 065
  8. HYDROXYCHLOROQUINE [Concomitant]
     Active Substance: HYDROXYCHLOROQUINE
     Route: 065
  9. MOMETASONE [Concomitant]
     Active Substance: MOMETASONE
     Dosage: DRUG REPORTED AS ASTHMANEX.
     Route: 065

REACTIONS (2)
  - No adverse event [Unknown]
  - Medication error [Unknown]

NARRATIVE: CASE EVENT DATE: 20100205
